FAERS Safety Report 6468839-9 (Version None)
Quarter: 2009Q4

REPORT INFORMATION
  Report Type: 
  Country: None (occurrence: None)
  Receive Date: 20091203
  Receipt Date: 20090806
  Transmission Date: 20100525
  Serious: Yes (Other)
  Sender: FDA-Public Use
  Company Number: US-ELI_LILLY_AND_COMPANY-US200606005697

PATIENT
  Sex: Female
  Weight: 97.052 kg

DRUGS (13)
  1. BYETTA [Suspect]
     Indication: TYPE 2 DIABETES MELLITUS
     Dosage: 5 UG, 2/D
     Route: 058
     Dates: start: 20050101
  2. GLYBURIDE [Concomitant]
  3. PREVACID [Concomitant]
  4. LEVOXYL [Concomitant]
  5. CARDURA [Concomitant]
  6. FOLIC ACID [Concomitant]
  7. ATIVAN [Concomitant]
  8. FLONASE [Concomitant]
  9. AMBIEN [Concomitant]
  10. SINGULAIR [Concomitant]
  11. ATARAX [Concomitant]
  12. LIBRAX [Concomitant]
  13. PLAQUENIL [Concomitant]
     Indication: SJOGREN'S SYNDROME

REACTIONS (16)
  - CONDITION AGGRAVATED [None]
  - CONTUSION [None]
  - DECREASED APPETITE [None]
  - EXCORIATION [None]
  - FALL [None]
  - HAIR TEXTURE ABNORMAL [None]
  - HAIRY CELL LEUKAEMIA [None]
  - HYPERHIDROSIS [None]
  - INCREASED APPETITE [None]
  - ONYCHOCLASIS [None]
  - PARAESTHESIA [None]
  - THYROID NEOPLASM [None]
  - VAGINAL INFECTION [None]
  - VAGINAL LESION [None]
  - VULVOVAGINAL BURNING SENSATION [None]
  - WEIGHT FLUCTUATION [None]
